FAERS Safety Report 9928777 (Version 3)
Quarter: 2014Q1

REPORT INFORMATION
  Report Type: Spontaneous
  Country: US (occurrence: US)
  Receive Date: 20140227
  Receipt Date: 20140331
  Transmission Date: 20141002
  Serious: Yes (Disabling)
  Sender: FDA-Public Use
  Company Number: US-GE HEALTHCARE MEDICAL DIAGNOSTICS-OSCN-PR-1006S-0152

PATIENT
  Age: 49 Year
  Sex: Male

DRUGS (7)
  1. GADOLINIUM (UNSPECIFIED) [Suspect]
     Indication: PRODUCT USED FOR UNKNOWN INDICATION
     Route: 042
     Dates: start: 20000106, end: 20000106
  2. GADOLINIUM (UNSPECIFIED) [Suspect]
     Route: 042
     Dates: start: 20000411, end: 20000411
  3. GADOLINIUM (UNSPECIFIED) [Suspect]
     Route: 042
     Dates: start: 20011026, end: 20011026
  4. GADOLINIUM (UNSPECIFIED) [Suspect]
     Route: 042
     Dates: start: 20020423, end: 20020423
  5. GADOLINIUM (UNSPECIFIED) [Suspect]
     Route: 042
     Dates: start: 20030202, end: 20030202
  6. GADOLINIUM (UNSPECIFIED) [Suspect]
     Dates: start: 20040331, end: 20040331
  7. PERCOCET [Concomitant]
     Dates: start: 20021021

REACTIONS (1)
  - Nephrogenic systemic fibrosis [Not Recovered/Not Resolved]
